FAERS Safety Report 19706782 (Version 1)
Quarter: 2021Q3

REPORT INFORMATION
  Report Type: Spontaneous
  Country: US (occurrence: US)
  Receive Date: 20210816
  Receipt Date: 20210816
  Transmission Date: 20211014
  Serious: No
  Sender: FDA-Public Use
  Company Number: None

PATIENT
  Age: 23 Year
  Sex: Female
  Weight: 157.5 kg

DRUGS (1)
  1. AMOXICILLIN. [Suspect]
     Active Substance: AMOXICILLIN
     Indication: STREPTOCOCCAL URINARY TRACT INFECTION
     Route: 048
     Dates: end: 20210727

REACTIONS (1)
  - Rash [None]

NARRATIVE: CASE EVENT DATE: 20210727
